FAERS Safety Report 9025082 (Version 1)
Quarter: 2013Q1

REPORT INFORMATION
  Report Type: Spontaneous
  Country: FR (occurrence: FR)
  Receive Date: 20130121
  Receipt Date: 20130121
  Transmission Date: 20140127
  Serious: Yes (Other)
  Sender: FDA-Public Use
  Company Number: FR-JNJFOC-20130105559

PATIENT
  Age: 44 Year
  Sex: Female

DRUGS (3)
  1. RISPERDAL [Suspect]
     Indication: PSYCHOTIC DISORDER
     Dosage: TREATEMENT STARTED 1 YEAR AGO
     Route: 048
  2. RISPERDAL [Suspect]
     Indication: PSYCHOTIC DISORDER
     Dosage: TREATEMENT STARTED 1 YEAR AGO
     Route: 048
  3. RISPERDAL [Suspect]
     Indication: PSYCHOTIC DISORDER
     Dosage: TREATEMENT STARTED 1 YEAR AGO
     Route: 048

REACTIONS (5)
  - Blood prolactin increased [Recovered/Resolved]
  - Amenorrhoea [Recovered/Resolved]
  - Breast discomfort [Recovered/Resolved]
  - Galactorrhoea [Recovered/Resolved]
  - Fatigue [Recovered/Resolved]
